FAERS Safety Report 12280456 (Version 2)
Quarter: 2016Q2

REPORT INFORMATION
  Report Type: Report from Study
  Country: DE (occurrence: DE)
  Receive Date: 20160419
  Receipt Date: 20160428
  Transmission Date: 20160815
  Serious: Yes (Hospitalization)
  Sender: FDA-Public Use
  Company Number: DE-ROCHE-720774

PATIENT
  Age: 76 Year
  Sex: Male
  Weight: 64.5 kg

DRUGS (8)
  1. OXALIPLATIN. [Suspect]
     Active Substance: OXALIPLATIN
     Indication: COLORECTAL CANCER METASTATIC
     Dosage: 80 MG/M2?LAST DOSE PRIOR TO SAE 23 SEPTEMBER 2010.?DATE OF LAST DOSE PRIOR TO RENAL FAILURE: 06 SEPT
     Route: 042
     Dates: start: 20100517, end: 20100917
  2. HYDROCHLOROTHIAZIDE/RAMIPRIL [Concomitant]
     Active Substance: HYDROCHLOROTHIAZIDE\RAMIPRIL
     Dosage: STARTED BEFORE 2010, TOTAL DAILY DOSE: 1.
     Route: 065
  3. NOVAMINSULFON [Concomitant]
     Active Substance: METAMIZOLE
     Route: 065
  4. BEVACIZUMAB [Suspect]
     Active Substance: BEVACIZUMAB
     Indication: COLORECTAL CANCER METASTATIC
     Dosage: DOSE FORM REPORTED AS 5 MG/KG.  LAST DOSE PRIOR TO SAE 06 SEPTEMBER 2010.
     Route: 042
     Dates: start: 20100517, end: 20100917
  5. SIMVASTATIN. [Concomitant]
     Active Substance: SIMVASTATIN
     Dosage: STARTED BEFORE 2010
     Route: 065
  6. FLUOROURACIL. [Suspect]
     Active Substance: FLUOROURACIL
     Indication: COLORECTAL CANCER METASTATIC
     Dosage: 1000 MG/M2?LAST DOSE PRIOR TO SAE 07 SEPTEMBER 2010.?DATE OF LAST DOSE PRIOR TO RENAL FAILURE: 06 SE
     Route: 042
     Dates: start: 20100517, end: 20100917
  7. PANTOZOL [Concomitant]
     Active Substance: PANTOPRAZOLE SODIUM
     Route: 065
  8. FOLINIC ACID [Suspect]
     Active Substance: LEUCOVORIN
     Indication: COLORECTAL CANCER METASTATIC
     Dosage: 200 MG/M2?DOSAGE FORM REPORTED AS IV. LAST DOSE PRIOR TO SAE 07 SEPTEMBER 2010.?DATE OF LAST DOSE PR
     Route: 042
     Dates: start: 20100517, end: 20100917

REACTIONS (4)
  - Decreased appetite [Recovered/Resolved]
  - Dehydration [Recovered/Resolved]
  - Dysphagia [Recovered/Resolved]
  - Renal failure [Recovered/Resolved]

NARRATIVE: CASE EVENT DATE: 20100729
